FAERS Safety Report 10779709 (Version 3)
Quarter: 2019Q2

REPORT INFORMATION
  Report Type: Spontaneous
  Country: GB (occurrence: GB)
  Receive Date: 20150210
  Receipt Date: 20190415
  Transmission Date: 20190711
  Serious: Yes (Hospitalization, Other)
  Sender: FDA-Public Use
  Company Number: GB-AUROBINDO-AUR-APL-2015-01043

PATIENT

DRUGS (15)
  1. CLARITHROMYCIN. [Suspect]
     Active Substance: CLARITHROMYCIN
     Indication: GASTRITIS
  2. CLARITHROMYCIN. [Suspect]
     Active Substance: CLARITHROMYCIN
     Indication: ABDOMINAL DISTENSION
  3. LANSOPRAZOLE. [Concomitant]
     Active Substance: LANSOPRAZOLE
     Indication: HELICOBACTER INFECTION
  4. AMOXICILLIN. [Concomitant]
     Active Substance: AMOXICILLIN
     Indication: HELICOBACTER INFECTION
  5. AMOXICILLIN. [Concomitant]
     Active Substance: AMOXICILLIN
     Indication: ABDOMINAL DISTENSION
  6. LANSOPRAZOLE. [Concomitant]
     Active Substance: LANSOPRAZOLE
     Indication: GASTRITIS
     Dosage: 30 MG, TWO TIMES A DAY
     Route: 065
  7. LACRILUBE [Concomitant]
     Indication: DRY EYE
     Dosage: UNK
     Route: 065
  8. AMOXICILLIN. [Concomitant]
     Active Substance: AMOXICILLIN
     Indication: ABDOMINAL PAIN UPPER
  9. CLARITHROMYCIN. [Suspect]
     Active Substance: CLARITHROMYCIN
     Indication: ABDOMINAL PAIN UPPER
  10. CIPROFLOXACIN. [Concomitant]
     Active Substance: CIPROFLOXACIN
     Indication: HELICOBACTER INFECTION
     Dosage: 500 MILLIGRAM, TWO TIMES A DAY
     Route: 065
  11. LANSOPRAZOLE. [Concomitant]
     Active Substance: LANSOPRAZOLE
     Indication: ABDOMINAL DISTENSION
  12. REFRESH CELLUVISC [Concomitant]
     Active Substance: CARBOXYMETHYLCELLULOSE SODIUM
     Indication: DRY EYE
     Dosage: UNK
     Route: 065
  13. CLARITHROMYCIN. [Suspect]
     Active Substance: CLARITHROMYCIN
     Indication: HELICOBACTER INFECTION
     Dosage: 500 MG, TWO TIMES A DAY
     Route: 065
  14. AMOXICILLIN. [Concomitant]
     Active Substance: AMOXICILLIN
     Indication: GASTRITIS
     Dosage: 1 G, TWO TIMES A DAY
     Route: 065
  15. LANSOPRAZOLE. [Concomitant]
     Active Substance: LANSOPRAZOLE
     Indication: ABDOMINAL PAIN UPPER

REACTIONS (36)
  - Hallucinations, mixed [Recovered/Resolved]
  - Delusion [Recovered/Resolved]
  - Confusional state [Recovered/Resolved]
  - Irritability [Recovered/Resolved]
  - Incoherent [Recovered/Resolved]
  - Thought blocking [Recovered/Resolved]
  - General physical health deterioration [Recovered/Resolved]
  - Dysgraphia [Recovered/Resolved]
  - Pressure of speech [Recovered/Resolved]
  - Agitation [Recovered/Resolved]
  - Suspiciousness [Recovered/Resolved]
  - Panic reaction [Recovered/Resolved]
  - Screaming [Recovered/Resolved]
  - Thinking abnormal [Recovered/Resolved]
  - Stubbornness [Recovered/Resolved]
  - Psychotic disorder [Recovered/Resolved]
  - Insomnia [Recovered/Resolved]
  - Affect lability [Recovered/Resolved]
  - Product dispensing error [Unknown]
  - Violence-related symptom [Recovered/Resolved]
  - Tangentiality [Recovered/Resolved]
  - Psychomotor hyperactivity [Recovered/Resolved]
  - Malaise [Recovered/Resolved]
  - Blood thyroid stimulating hormone increased [Recovered/Resolved]
  - Paranoia [Recovered/Resolved]
  - Hypomania [Recovered/Resolved]
  - Anxiety [Recovered/Resolved]
  - Unresponsive to stimuli [Recovered/Resolved]
  - Verbal abuse [Recovered/Resolved]
  - Abnormal behaviour [Recovered/Resolved]
  - Circumstantiality [Recovered/Resolved]
  - Personality change [Recovered/Resolved]
  - Histrionic personality disorder [Recovered/Resolved]
  - Stress [Recovered/Resolved]
  - Mood swings [Recovered/Resolved]
  - Mental status changes [Recovered/Resolved]
